FAERS Safety Report 5160471-2 (Version None)
Quarter: 2006Q4

REPORT INFORMATION
  Report Type: 
  Country: None (occurrence: None)
  Receive Date: 20061121
  Receipt Date: 20061030
  Transmission Date: 20070319
  Serious: Yes (Hospitalization, Other)
  Sender: FDA-Public Use
  Company Number: 2006132467

PATIENT
  Age: 81 Year
  Sex: Male
  Weight: 86.1834 kg

DRUGS (5)
  1. XALATAN [Suspect]
     Indication: GLAUCOMA
     Dosage: OPHTHALMIC
     Route: 047
     Dates: start: 20020101
  2. ASPIRIN [Concomitant]
  3. LISINOPRIL [Concomitant]
  4. LOVASTATIN (LOVASATIN) [Concomitant]
  5. ALL OTHER THERAPEUTIC PRODUCTS (ALL OTHER THERAPEUTIC PRODUCTS) [Concomitant]

REACTIONS (11)
  - ABNORMAL FAECES [None]
  - ARTHRALGIA [None]
  - BACK PAIN [None]
  - CATARACT [None]
  - EYE DISORDER [None]
  - GAIT DISTURBANCE [None]
  - PAIN IN EXTREMITY [None]
  - PNEUMONIA [None]
  - PRURITUS [None]
  - SKIN DISCOLOURATION [None]
  - VISION BLURRED [None]
